FAERS Safety Report 19793357 (Version 2)
Quarter: 2021Q3

REPORT INFORMATION
  Report Type: Spontaneous
  Country: FR (occurrence: FR)
  Receive Date: 20210906
  Receipt Date: 20210923
  Transmission Date: 20211014
  Serious: Yes (Other)
  Sender: FDA-Public Use
  Company Number: NVSC2021FR199548

PATIENT
  Age: 78 Year
  Sex: Female
  Weight: 47.5 kg

DRUGS (3)
  1. LEVOFLOXACIN. [Suspect]
     Active Substance: LEVOFLOXACIN
     Indication: URINARY TRACT INFECTION
     Dosage: UNK
     Route: 048
     Dates: start: 20210728, end: 20210731
  2. HYDREA [Suspect]
     Active Substance: HYDROXYUREA
     Dosage: 2 MILLIGRAM, 1 DAY
     Route: 048
     Dates: start: 20210728, end: 20210731
  3. HYDREA [Suspect]
     Active Substance: HYDROXYUREA
     Indication: POLYCYTHAEMIA VERA
     Dosage: 2 MG, QD
     Route: 048
     Dates: start: 20210728, end: 20210731

REACTIONS (2)
  - Off label use [Unknown]
  - Epilepsy [Recovered/Resolved]

NARRATIVE: CASE EVENT DATE: 20210731
